FAERS Safety Report 8781247 (Version 6)
Quarter: 2014Q2

REPORT INFORMATION
  Report Type: Spontaneous
  Country: US (occurrence: US)
  Receive Date: 20120913
  Receipt Date: 20140603
  Transmission Date: 20141212
  Serious: Yes (Hospitalization, Other)
  Sender: FDA-Public Use
  Company Number: US-009507513-1209USA001515

PATIENT
  Sex: Female

DRUGS (3)
  1. FOSAMAX [Suspect]
     Indication: OSTEOPOROSIS
     Dosage: 10 MG, UNK
     Route: 048
  2. FOSAMAX [Suspect]
     Dosage: 70 MG, QW
     Route: 048
  3. ALENDRONATE SODIUM [Suspect]
     Dosage: 70 MG, UNK

REACTIONS (21)
  - Intramedullary rod insertion [Unknown]
  - Femur fracture [Recovered/Resolved]
  - Intramedullary rod insertion [Unknown]
  - Breast cancer in situ [Unknown]
  - Malignant melanoma [Unknown]
  - Cholecystitis acute [Unknown]
  - Cholecystectomy [Unknown]
  - Femur fracture [Recovered/Resolved]
  - Medical device discomfort [Unknown]
  - Low turnover osteopathy [Unknown]
  - Osteoarthritis [Unknown]
  - Complication of device removal [Unknown]
  - Bladder diverticulum [Unknown]
  - Spinal osteoarthritis [Unknown]
  - Osteitis [Unknown]
  - Osteosclerosis [Unknown]
  - Vascular calcification [Unknown]
  - Hypertension [Unknown]
  - Blood cholesterol increased [Unknown]
  - Haemoglobin decreased [Recovering/Resolving]
  - Urinary tract infection [Unknown]
